FAERS Safety Report 7708645-8 (Version None)
Quarter: 2011Q3

REPORT INFORMATION
  Report Type: 
  Country: None (occurrence: None)
  Receive Date: 20110825
  Receipt Date: 20110817
  Transmission Date: 20111222
  Serious: Yes (Life-Threatening, Other)
  Sender: FDA-Public Use
  Company Number: US-BAYER-2011-019555

PATIENT
  Age: 22 Year
  Sex: Female

DRUGS (7)
  1. IBUPROFEN [Concomitant]
     Indication: HEADACHE
  2. EXCEDRIN (MIGRAINE) [Concomitant]
     Indication: MIGRAINE
  3. IBUPROFEN [Concomitant]
     Indication: PYREXIA
  4. YAZ [Suspect]
     Dosage: UNK
     Dates: start: 20071101, end: 20090401
  5. TYLENOL-500 [Concomitant]
     Indication: PAIN
  6. BENADRYL [Concomitant]
     Indication: MULTIPLE ALLERGIES
  7. TYLENOL-500 [Concomitant]
     Indication: HEADACHE

REACTIONS (4)
  - CHOLECYSTITIS CHRONIC [None]
  - CHOLELITHIASIS [None]
  - GALLBLADDER INJURY [None]
  - PAIN [None]
